FAERS Safety Report 4974114-1 (Version None)
Quarter: 2006Q2

REPORT INFORMATION
  Report Type: 
  Country: None (occurrence: None)
  Receive Date: 20060417
  Receipt Date: 20060203
  Transmission Date: 20061013
  Serious: Yes (Death, Hospitalization)
  Sender: FDA-Public Use
  Company Number: US-MERCK-0602USA00647

PATIENT
  Age: 74 Year
  Sex: Male
  Weight: 70 kg

DRUGS (6)
  1. VIOXX [Suspect]
     Indication: OSTEOARTHRITIS
     Route: 048
     Dates: start: 20000714, end: 20040201
  2. NORVASC [Concomitant]
     Route: 065
  3. LASIX [Concomitant]
     Route: 065
  4. ISOSORBIDE MONONITRATE ER [Concomitant]
     Route: 065
  5. TOPROL-XL [Concomitant]
     Route: 065
  6. DIGITEK [Concomitant]
     Route: 065

REACTIONS (7)
  - ARTERIOSCLEROSIS [None]
  - COAGULOPATHY [None]
  - HYPERTENSIVE HEART DISEASE [None]
  - INTERMITTENT CLAUDICATION [None]
  - KNEE ARTHROPLASTY [None]
  - MYOCARDIAL INFARCTION [None]
  - PNEUMONIA [None]
